FAERS Safety Report 5134833-3 (Version None)
Quarter: 2006Q4

REPORT INFORMATION
  Report Type: 
  Country: None (occurrence: None)
  Receive Date: 20061025
  Receipt Date: 20061018
  Transmission Date: 20070319
  Serious: Yes (Hospitalization)
  Sender: FDA-Public Use
  Company Number: 2006CG01696

PATIENT
  Age: 77 Year
  Sex: Female

DRUGS (4)
  1. ARIMIDEX [Suspect]
     Indication: BREAST CANCER
     Route: 048
  2. OMEPRAZOLE [Suspect]
     Route: 048
     Dates: end: 20060811
  3. HYZAAR [Suspect]
     Indication: HYPERTENSION
     Route: 048
     Dates: end: 20060811
  4. CLASTOBAN [Suspect]
     Route: 048

REACTIONS (2)
  - HAEMOLYTIC ANAEMIA [None]
  - THERAPY NON-RESPONDER [None]
